FAERS Safety Report 5630638-5 (Version None)
Quarter: 2008Q1

REPORT INFORMATION
  Report Type: 
  Country: None (occurrence: None)
  Receive Date: 20080212
  Receipt Date: 20080128
  Transmission Date: 20080703
  Serious: Yes (Other)
  Sender: FDA-Public Use
  Company Number: 2008S1000703

PATIENT
  Age: 56 Year
  Sex: Female

DRUGS (4)
  1. PHOSPHOSODA GINGER LEMON [Suspect]
     Indication: ENDOSCOPY GASTROINTESTINAL
     Dosage: 45 ML; X1; PO
     Route: 048
     Dates: start: 20080128, end: 20080128
  2. ACTOS [Concomitant]
  3. METOPROLOL TARTRATE [Concomitant]
  4. PRILOSEC [Concomitant]

REACTIONS (7)
  - BLOOD POTASSIUM DECREASED [None]
  - COLD SWEAT [None]
  - DIZZINESS [None]
  - GASTRIC DISORDER [None]
  - NAUSEA [None]
  - RETCHING [None]
  - TREMOR [None]
